FAERS Safety Report 21286981 (Version 1)
Quarter: 2022Q3

REPORT INFORMATION
  Report Type: Spontaneous
  Country: US (occurrence: US)
  Receive Date: 20220902
  Receipt Date: 20220902
  Transmission Date: 20221027
  Serious: Yes (Life-Threatening, Other)
  Sender: FDA-Public Use
  Company Number: US-PFIZER INC-202201095602

PATIENT
  Age: 27 Year
  Sex: Male

DRUGS (4)
  1. GENTAMICIN SULFATE [Suspect]
     Active Substance: GENTAMICIN SULFATE
     Indication: Meningitis listeria
     Dosage: UNK
  2. CEFTAZIDIME [Suspect]
     Active Substance: CEFTAZIDIME
     Indication: Meningitis listeria
     Dosage: UNK
  3. VANCOMYCIN HYDROCHLORIDE [Suspect]
     Active Substance: VANCOMYCIN HYDROCHLORIDE
     Indication: Meningitis listeria
     Dosage: UNK
  4. AMPICILLIN [Suspect]
     Active Substance: AMPICILLIN
     Indication: Meningitis listeria
     Dosage: UNK

REACTIONS (3)
  - Brain death [Unknown]
  - Off label use [Unknown]
  - Drug ineffective for unapproved indication [Unknown]
